APPROVED DRUG PRODUCT: DEHYDRATED ALCOHOL
Active Ingredient: DEHYDRATED ALCOHOL
Strength: 99% (5ML)
Dosage Form/Route: SOLUTION;INTRA-ARTERIAL
Application: A217845 | Product #001 | TE Code: AP
Applicant: ACCORD HEALTHCARE INC
Approved: Jun 23, 2025 | RLD: No | RS: No | Type: RX